FAERS Safety Report 18485632 (Version 2)
Quarter: 2020Q4

REPORT INFORMATION
  Report Type: Report from Study
  Country: IT (occurrence: IT)
  Receive Date: 20201110
  Receipt Date: 20201130
  Transmission Date: 20210114
  Serious: Yes (Other)
  Sender: FDA-Public Use
  Company Number: IT-TEVA-2020-IT-1845932

PATIENT
  Age: 19 Year
  Sex: Female

DRUGS (1)
  1. IBUPROFEN. [Suspect]
     Active Substance: IBUPROFEN
     Route: 048
     Dates: start: 20200927, end: 20200927

REACTIONS (5)
  - Hypersensitivity [Recovering/Resolving]
  - Throat tightness [Recovering/Resolving]
  - Rash erythematous [Recovering/Resolving]
  - Lip oedema [Recovering/Resolving]
  - Pruritus [Recovering/Resolving]

NARRATIVE: CASE EVENT DATE: 20200927
